FAERS Safety Report 13995031 (Version 1)
Quarter: 2017Q3

REPORT INFORMATION
  Report Type: Spontaneous
  Country: CA (occurrence: CA)
  Receive Date: 20170921
  Receipt Date: 20170921
  Transmission Date: 20171128
  Serious: Yes (Other)
  Sender: FDA-Public Use
  Company Number: None

PATIENT
  Age: 75 Year
  Sex: Male
  Weight: 73.35 kg

DRUGS (2)
  1. PROLIA [Suspect]
     Active Substance: DENOSUMAB
     Indication: DRUG THERAPY
     Route: 030
     Dates: start: 20161130, end: 20170531
  2. ASPERINE [Concomitant]

REACTIONS (3)
  - Pruritus [None]
  - Rash [None]
  - Skin lesion [None]

NARRATIVE: CASE EVENT DATE: 20170729
